FAERS Safety Report 15260210 (Version 1)
Quarter: 2018Q3

REPORT INFORMATION
  Report Type: Spontaneous
  Country: US (occurrence: US)
  Receive Date: 20180719
  Receipt Date: 20180719
  Transmission Date: 20181010
  Serious: No
  Sender: FDA-Public Use
  Company Number: None

PATIENT
  Age: 56 Year
  Sex: Female

DRUGS (3)
  1. SYNTHROID [Concomitant]
     Active Substance: LEVOTHYROXINE SODIUM
  2. AZELASTINE HC( NASAL SOLUTION (NASAL SPRAY) 0.15% (205.5MCG PER SPRAY) [Suspect]
     Active Substance: AZELASTINE HYDROCHLORIDE
     Indication: HYPERSENSITIVITY
     Dosage: ?          QUANTITY:2 PUFF(S);?
     Route: 055
     Dates: start: 20180714, end: 20180718
  3. VITAMINS [Concomitant]
     Active Substance: VITAMINS

REACTIONS (6)
  - Palatal disorder [None]
  - Product quality issue [None]
  - Dysgeusia [None]
  - Palatal swelling [None]
  - Product substitution issue [None]
  - Oropharyngeal pain [None]

NARRATIVE: CASE EVENT DATE: 20180714
